FAERS Safety Report 24057439 (Version 3)
Quarter: 2025Q4

REPORT INFORMATION
  Report Type: Spontaneous
  Country: EU (occurrence: EU)
  Receive Date: 20240706
  Receipt Date: 20251119
  Transmission Date: 20260117
  Serious: Yes (Death, Hospitalization)
  Sender: AUROBINDO
  Company Number: EU-INCYTE CORPORATION-2024IN006593

PATIENT
  Age: 76 Year
  Sex: Female
  Weight: 56 kg

DRUGS (4)
  1. LENALIDOMIDE [Suspect]
     Active Substance: LENALIDOMIDE
     Indication: Diffuse large B-cell lymphoma
     Dosage: 25 MILLIGRAM, ONCE A DAY
     Dates: start: 20240521, end: 20240524
  2. LENALIDOMIDE [Suspect]
     Active Substance: LENALIDOMIDE
     Dosage: 10 MILLIGRAM, ONCE A DAY 21 DAYS
     Dates: start: 20240606, end: 20240617
  3. TAFASITAMAB [Suspect]
     Active Substance: TAFASITAMAB
     Indication: Diffuse large B-cell lymphoma
     Dosage: 670 MILLIGRAM EVERY WEEK FOR 1ST CYCLE
     Dates: start: 20240521, end: 20240617
  4. PREDNISONE [Concomitant]
     Active Substance: PREDNISONE
     Indication: Lymphoma
     Dosage: 50 MILLIGRAM, ONCE A DAY
     Dates: start: 20240614

REACTIONS (2)
  - Disease progression [Fatal]
  - Infection [Recovered/Resolved]

NARRATIVE: CASE EVENT DATE: 20240616
